FAERS Safety Report 8406451-2 (Version None)
Quarter: 2012Q2

REPORT INFORMATION
  Report Type: 
  Country: None (occurrence: None)
  Receive Date: 20120604
  Receipt Date: 20120523
  Transmission Date: 20120825
  Serious: Yes (Death, Other)
  Sender: FDA-Public Use
  Company Number: NL-MILLENNIUM PHARMACEUTICALS, INC.-2012-03672

PATIENT

DRUGS (1)
  1. VELCADE [Suspect]
     Indication: PRODUCT USED FOR UNKNOWN INDICATION
     Dosage: 2.2 MG, UNK
     Route: 042
     Dates: start: 20060801, end: 20060811

REACTIONS (3)
  - LEFT VENTRICULAR DYSFUNCTION [None]
  - RESPIRATORY FAILURE [None]
  - CEREBRAL DISORDER [None]
